FAERS Safety Report 18386934 (Version 1)
Quarter: 2020Q4

REPORT INFORMATION
  Report Type: Spontaneous
  Country: US (occurrence: US)
  Receive Date: 20201014
  Receipt Date: 20201014
  Transmission Date: 20210114
  Serious: Yes (Other)
  Sender: FDA-Public Use
  Company Number: None

PATIENT
  Age: 40 Year
  Sex: Female
  Weight: 58.97 kg

DRUGS (1)
  1. ALBUTEROL SULFATE. [Suspect]
     Active Substance: ALBUTEROL SULFATE
     Indication: ASTHMA
     Dates: start: 20200917, end: 20201010

REACTIONS (4)
  - Asthma [None]
  - Recalled product [None]
  - Drug delivery system malfunction [None]
  - Device failure [None]

NARRATIVE: CASE EVENT DATE: 20201010
